FAERS Safety Report 6071415-3 (Version None)
Quarter: 2009Q1

REPORT INFORMATION
  Report Type: 
  Country: None (occurrence: None)
  Receive Date: 20090204
  Receipt Date: 20090129
  Transmission Date: 20090719
  Serious: Yes (Hospitalization)
  Sender: FDA-Public Use
  Company Number: IPS_01360_2008

PATIENT
  Age: 66 Year
  Sex: Male
  Weight: 80.7403 kg

DRUGS (7)
  1. APOKYN [Suspect]
     Indication: PARKINSON'S DISEASE
     Dosage: (0.3 ML 1X/4 DAYS SUBCUTANEOUS
     Route: 058
     Dates: start: 20081118
  2. SINEMET [Concomitant]
  3. REQUIP [Concomitant]
  4. MIDODRINE [Concomitant]
  5. AZILECT /01759902/ [Concomitant]
  6. FLUDROCORTISONE [Concomitant]
  7. LIPITOR [Concomitant]

REACTIONS (5)
  - BLOOD PRESSURE INCREASED [None]
  - HYPERHIDROSIS [None]
  - NIGHT SWEATS [None]
  - OEDEMA PERIPHERAL [None]
  - THIRST [None]
